FAERS Safety Report 4713777-2 (Version None)
Quarter: 2005Q3

REPORT INFORMATION
  Report Type: 
  Country: None (occurrence: None)
  Receive Date: 20050713
  Receipt Date: 20050627
  Transmission Date: 20060218
  Serious: Yes (Hospitalization, Other)
  Sender: FDA-Public Use
  Company Number: USA0506100599

PATIENT
  Age: 78 Year
  Sex: Male
  Weight: 104 kg

DRUGS (5)
  1. ALIMTA [Suspect]
     Indication: NON-SMALL CELL LUNG CANCER METASTATIC
     Dosage: 1000 MG
     Dates: start: 20050519
  2. FOLIC ACID [Concomitant]
  3. VITAMIN B-12 [Concomitant]
  4. DECADRON [Concomitant]
  5. BARBITURATES [Concomitant]

REACTIONS (1)
  - CONFUSIONAL STATE [None]
